FAERS Safety Report 12083044 (Version 1)
Quarter: 2016Q1

REPORT INFORMATION
  Report Type: Spontaneous
  Country: US (occurrence: None)
  Receive Date: 20160216
  Receipt Date: 20160216
  Transmission Date: 20160526
  Serious: Yes (Death, Life-Threatening, Hospitalization)
  Sender: FDA-Public Use
  Company Number: None

PATIENT
  Age: 56 Year
  Sex: Male

DRUGS (14)
  1. KETOCONAZOLE. [Concomitant]
     Active Substance: KETOCONAZOLE
  2. OXYCODONE/APAP [Concomitant]
     Active Substance: ACETAMINOPHEN\OXYCODONE HYDROCHLORIDE
  3. MOVANTIK [Suspect]
     Active Substance: NALOXEGOL OXALATE
     Indication: CONSTIPATION
     Route: 048
  4. DESONIDE 0.05% [Concomitant]
  5. VIMOVO [Concomitant]
     Active Substance: ESOMEPRAZOLE MAGNESIUM\NAPROXEN
  6. CITALOPRAM [Concomitant]
     Active Substance: CITALOPRAM HYDROBROMIDE
  7. OXYCONTIN [Concomitant]
     Active Substance: OXYCODONE HYDROCHLORIDE
  8. TRETINOIN. [Concomitant]
     Active Substance: TRETINOIN
  9. POTASSIUM CL [Concomitant]
     Active Substance: POTASSIUM CHLORIDE
  10. ACYCLOVIR 5% [Concomitant]
     Active Substance: ACYCLOVIR
  11. BACLOFEN. [Concomitant]
     Active Substance: BACLOFEN
  12. ESZOPICLONE. [Concomitant]
     Active Substance: ESZOPICLONE
  13. VIAGRA [Concomitant]
     Active Substance: SILDENAFIL CITRATE
  14. VALACYCLOVIR [Concomitant]
     Active Substance: VALACYCLOVIR HYDROCHLORIDE

REACTIONS (3)
  - Sudden death [None]
  - Loss of consciousness [None]
  - Myocardial infarction [None]
